FAERS Safety Report 13718126 (Version 1)
Quarter: 2017Q3

REPORT INFORMATION
  Report Type: Spontaneous
  Country: CN (occurrence: CN)
  Receive Date: 20170705
  Receipt Date: 20170705
  Transmission Date: 20171127
  Serious: Yes (Other)
  Sender: FDA-Public Use
  Company Number: CN-B.I. PHARMACEUTICALS,INC./RIDGEFIELD-2017-BI-037036

PATIENT
  Age: 44 Year
  Sex: Female

DRUGS (4)
  1. GILOTRIF [Suspect]
     Active Substance: AFATINIB
     Indication: METASTASES TO CENTRAL NERVOUS SYSTEM
  2. GILOTRIF [Suspect]
     Active Substance: AFATINIB
     Indication: EGFR GENE MUTATION
  3. GILOTRIF [Suspect]
     Active Substance: AFATINIB
     Indication: METASTASES TO BONE
  4. GILOTRIF [Suspect]
     Active Substance: AFATINIB
     Indication: LUNG ADENOCARCINOMA
     Route: 065

REACTIONS (2)
  - Gene mutation [Recovering/Resolving]
  - Lung adenocarcinoma [Recovering/Resolving]
